FAERS Safety Report 10040783 (Version 2)
Quarter: 2014Q2

REPORT INFORMATION
  Report Type: Report from Study
  Country: IL (occurrence: IL)
  Receive Date: 20140327
  Receipt Date: 20140521
  Transmission Date: 20141212
  Serious: Yes (Hospitalization)
  Sender: FDA-Public Use
  Company Number: PHHY2014IL035489

PATIENT
  Age: 81 Year
  Sex: Female

DRUGS (1)
  1. SANDOSTATIN LAR [Suspect]
     Indication: CARCINOID TUMOUR
     Dosage: 20 MG, ONCE PER 4 WEEKS
     Route: 030
     Dates: start: 20131230

REACTIONS (2)
  - Cerebrovascular accident [Recovering/Resolving]
  - Obstruction [Unknown]
